FAERS Safety Report 8991180 (Version 1)
Quarter: 2012Q4

REPORT INFORMATION
  Report Type: Spontaneous
  Country: US (occurrence: None)
  Receive Date: 20121227
  Receipt Date: 20121227
  Transmission Date: 20130627
  Serious: Yes (Other)
  Sender: FDA-Public Use
  Company Number: None

PATIENT
  Sex: Female

DRUGS (2)
  1. AVONEX [Suspect]
     Indication: MULTIPLE SCLEROSIS
     Dosage: 30 mcg Every week IM
     Route: 030
     Dates: start: 20121123, end: 20121224
  2. SIMVASTATIN [Concomitant]

REACTIONS (2)
  - Chills [None]
  - Balance disorder [None]
